FAERS Safety Report 9499081 (Version 1)
Quarter: 2013Q3

REPORT INFORMATION
  Report Type: Report from Study
  Country: US (occurrence: US)
  Receive Date: 20130904
  Receipt Date: 20130904
  Transmission Date: 20140515
  Serious: Yes (Hospitalization)
  Sender: FDA-Public Use
  Company Number: US-ROCHE-1266780

PATIENT
  Sex: Female

DRUGS (14)
  1. XOLAIR [Suspect]
     Indication: ASTHMA
     Route: 065
  2. ALBUTEROL SULFATE [Concomitant]
     Dosage: 2.5MG/3ML NEB AS NEEDED EVERY 4 HOURS
     Route: 065
  3. KETOTIFEN FUMARATE [Concomitant]
     Dosage: 1 DROP INTO AFFECTED EYE TWICE A DAY PRN
     Route: 065
  4. NEXIUM [Concomitant]
     Dosage: 1 DAYS
     Route: 065
  5. PATADAY [Concomitant]
     Dosage: DROP INTO AFFECTED EYE ONCE A DAY
     Route: 065
  6. TOBRAMYCIN [Concomitant]
     Dosage: IN 5ML NEB 5ML TWICE A DAY
     Route: 065
  7. AMPHOTERICIN B [Concomitant]
     Dosage: 905 U/MG POWDER AS DIRECTED
     Route: 065
  8. PROZAC [Concomitant]
     Route: 065
  9. VENTOLIN HFA [Concomitant]
     Dosage: ACT 2 PUFFS PRN Q4 HOURS
     Route: 065
  10. SYMBICORT [Concomitant]
     Dosage: 160-4.5 MCG/ACT 2 PUFFS TWICE A DAY
     Route: 065
  11. ROBITUSSIN COUGHGELS [Concomitant]
     Dosage: AS DIRECTED
     Route: 065
  12. DOXYCYCLINE HYCLATE [Concomitant]
     Route: 065
  13. PATANASE [Concomitant]
     Dosage: 12 HOURS
     Route: 045
  14. FLUTICASONE PROPIONATE [Concomitant]
     Dosage: ACT/ 1 SPRAY EACH NOSTRIL TWICE A DAILY
     Route: 065

REACTIONS (31)
  - Asthma [Unknown]
  - Wheezing [Unknown]
  - Urticaria [Unknown]
  - Nasal oedema [Unknown]
  - Nasal turbinate abnormality [Unknown]
  - Upper-airway cough syndrome [Unknown]
  - Respiratory tract congestion [Unknown]
  - Cough [Unknown]
  - Sinus headache [Unknown]
  - Dyspnoea exertional [Unknown]
  - Chest discomfort [Unknown]
  - Depression [Unknown]
  - Obstructive airways disorder [Unknown]
  - Angioedema [Unknown]
  - Choking sensation [Unknown]
  - Eye pruritus [Unknown]
  - Nasal discomfort [Unknown]
  - Pruritus [Unknown]
  - Rash [Unknown]
  - Swelling [Unknown]
  - Erythema [Unknown]
  - Dyspnoea [Unknown]
  - Feeling abnormal [Unknown]
  - Musculoskeletal discomfort [Unknown]
  - Insomnia [Unknown]
  - Sinus headache [Unknown]
  - Oropharyngeal pain [Unknown]
  - Rhinitis [Unknown]
  - Breath sounds abnormal [Unknown]
  - Blood pressure abnormal [Unknown]
  - Purulent discharge [Unknown]
